FAERS Safety Report 18202492 (Version 1)
Quarter: 2020Q3

REPORT INFORMATION
  Report Type: Spontaneous
  Country: US (occurrence: US)
  Receive Date: 20200827
  Receipt Date: 20200827
  Transmission Date: 20201103
  Serious: Yes (Disabling)
  Sender: FDA-Public Use
  Company Number: None

PATIENT
  Age: 29 Year
  Sex: Female
  Weight: 68.4 kg

DRUGS (2)
  1. LILETTA [Suspect]
     Active Substance: LEVONORGESTREL
     Indication: CONTRACEPTION
     Dates: start: 20191223, end: 20200730
  2. PRENATAL [Concomitant]
     Active Substance: VITAMINS

REACTIONS (2)
  - Anxiety [None]
  - Acne [None]

NARRATIVE: CASE EVENT DATE: 20200201
